FAERS Safety Report 8721124 (Version 2)
Quarter: 2012Q4

REPORT INFORMATION
  Report Type: 
  Country: US (occurrence: US)
  Receive Date: 20120813
  Receipt Date: 20121105
  Transmission Date: 20130627
  Serious: No
  Sender: FDA-Public Use
  Company Number: US-PFIZER INC-2012194196

PATIENT
  Age: 45 Year
  Sex: Female
  Weight: 108 kg

DRUGS (17)
  1. LYRICA [Suspect]
     Indication: BACK DISORDER
     Dosage: 150 mg, 2x/day
     Route: 048
     Dates: start: 201102
  2. LISINOPRIL [Concomitant]
     Indication: BLOOD PRESSURE HIGH
     Dosage: 10 mg, daily
  3. HYDROCHLOROTHIAZIDE [Concomitant]
     Indication: BLOOD PRESSURE HIGH
     Dosage: 25 mg, daily
  4. METOPROLOL [Concomitant]
     Indication: BLOOD PRESSURE HIGH
     Dosage: 50 mg, daily
  5. SIMVASTATIN [Concomitant]
     Indication: HIGH CHOLESTEROL
     Dosage: 40 mg, daily
  6. FISH OIL [Concomitant]
     Indication: HIGH CHOLESTEROL
     Dosage: 1000 mg, 3x/day
  7. NIACIN [Concomitant]
     Indication: HIGH CHOLESTEROL
     Dosage: 500 mg, daily
  8. MOBIC [Concomitant]
     Indication: INTERVERTEBRAL DISC BULGING
     Dosage: 7.5 mg, daily
  9. METFORMIN [Concomitant]
     Indication: TYPE II DIABETES MELLITUS
     Dosage: 500 mg, 2x/day
  10. AMITRIPTYLINE [Concomitant]
     Indication: HEADACHE
     Dosage: 50 mg, daily
  11. MOTRIN [Concomitant]
     Indication: HEADACHE
     Dosage: 400 mg, 2x/day
  12. MOTRIN [Concomitant]
     Indication: MIGRAINE HEADACHE
  13. ASPIRIN [Concomitant]
     Indication: FLUSHING
     Dosage: 81 mg, daily
  14. PREVACID [Concomitant]
     Indication: GASTROESOPHAGEAL REFLUX DISEASE
     Dosage: 20 mg, 2x/day
  15. KETOCONAZOLE [Concomitant]
     Indication: ECZEMA FACIAL
     Dosage: UNK, 2x/day
     Route: 061
  16. VICODIN [Concomitant]
     Indication: BACK DISORDER
     Dosage: 5/500 mg, 2x/day
     Route: 048
  17. ROBAXIN [Concomitant]
     Indication: PAIN
     Dosage: 750 mg three times, as needed
     Route: 048

REACTIONS (1)
  - Toothache [Recovering/Resolving]
